FAERS Safety Report 6097298-3 (Version None)
Quarter: 2009Q1

REPORT INFORMATION
  Report Type: 
  Country: None (occurrence: None)
  Receive Date: 20090227
  Receipt Date: 20090225
  Transmission Date: 20090719
  Serious: Yes (Other)
  Sender: FDA-Public Use
  Company Number: NO-BRISTOL-MYERS SQUIBB COMPANY-14521181

PATIENT
  Age: 27 Year
  Sex: Male

DRUGS (6)
  1. BLEOMYCIN SULFATE [Suspect]
     Indication: TESTIS CANCER
     Dosage: ON DAY 1
     Dates: start: 20081103, end: 20081103
  2. CISPLATIN [Suspect]
     Indication: TESTIS CANCER
     Dosage: FROM DAY 1-4
     Dates: start: 20081103, end: 20081106
  3. HOLOXAN [Suspect]
     Indication: TESTIS CANCER
     Dosage: ON DAY 1-4 RECIEVED 1 VIAL 2000MG,LOT#7L134 + 1 VIAL 500MG,LOT#7F105
     Dates: start: 20081103, end: 20081106
  4. ETOPOSIDE [Suspect]
     Indication: TESTIS CANCER
     Dosage: ON DAY 1-4
     Dates: start: 20081103, end: 20081106
  5. MESNA [Suspect]
     Indication: TESTIS CANCER
     Dosage: ON DAY 1-4
     Dates: start: 20081103, end: 20081106
  6. VOLTAREN [Concomitant]
     Dates: start: 20050101

REACTIONS (1)
  - EPILEPSY [None]
